FAERS Safety Report 24177148 (Version 2)
Quarter: 2024Q4

REPORT INFORMATION
  Report Type: Spontaneous
  Country: FR (occurrence: None)
  Receive Date: 20240806
  Receipt Date: 20241001
  Transmission Date: 20250115
  Serious: Yes (Death, Hospitalization, Other)
  Sender: UNICHEM
  Company Number: FR-Unichem Pharmaceuticals (USA) Inc-UCM202407-000963

PATIENT
  Age: 55 Year
  Sex: Female

DRUGS (8)
  1. TRAMADOL HCL [Suspect]
     Active Substance: TRAMADOL HYDROCHLORIDE
     Indication: Product used for unknown indication
     Dosage: UNKNOWN
  2. OXYCODONE [Suspect]
     Active Substance: OXYCODONE
     Indication: Product used for unknown indication
     Dosage: UNKNOWN
  3. OXYCODONE [Suspect]
     Active Substance: OXYCODONE
     Indication: Product used for unknown indication
     Dosage: UNKNOWN
  4. DESMETRAMADOL [Suspect]
     Active Substance: DESMETRAMADOL
     Indication: Product used for unknown indication
     Dosage: UNKNOWN
  5. DOXEPIN [Suspect]
     Active Substance: DOXEPIN
     Indication: Product used for unknown indication
     Dosage: UNKNOWN
  6. ALPRAZOLAM [Suspect]
     Active Substance: ALPRAZOLAM
     Indication: Product used for unknown indication
     Dosage: UNKNOWN
  7. PRAZEPAM [Suspect]
     Active Substance: PRAZEPAM
     Indication: Product used for unknown indication
     Dosage: UNKNOWN
  8. ZOPICLONE [Suspect]
     Active Substance: ZOPICLONE
     Indication: Product used for unknown indication
     Dosage: UNKNOWN

REACTIONS (3)
  - Bezoar [Fatal]
  - Toxicity to various agents [Fatal]
  - Suicide attempt [Fatal]
